FAERS Safety Report 18420097 (Version 1)
Quarter: 2020Q4

REPORT INFORMATION
  Report Type: Spontaneous
  Country: FR (occurrence: FR)
  Receive Date: 20201023
  Receipt Date: 20201023
  Transmission Date: 20210114
  Serious: Yes (Other)
  Sender: FDA-Public Use
  Company Number: FR-PFIZER INC-2020408067

PATIENT
  Age: 65 Year
  Sex: Female
  Weight: 79 kg

DRUGS (7)
  1. CAPECITABINE. [Suspect]
     Active Substance: CAPECITABINE
     Indication: ADENOCARCINOMA OF COLON
     Dosage: 4000 MG, 1X/DAY
     Route: 048
     Dates: start: 20200522, end: 202007
  2. CRESTOR [Concomitant]
     Active Substance: ROSUVASTATIN CALCIUM
     Dosage: 5 MG, 1X/DAY
     Route: 048
  3. DAONIL [Concomitant]
     Active Substance: GLYBURIDE
     Dosage: 5 MG, 1X/DAY
     Route: 048
  4. COTAREG [Concomitant]
     Active Substance: HYDROCHLOROTHIAZIDE\VALSARTAN
     Dosage: 1 DF, 1X/DAY
     Route: 048
  5. OXALIPLATIN. [Suspect]
     Active Substance: OXALIPLATIN
     Indication: ADENOCARCINOMA OF COLON
     Dosage: UNK
     Route: 042
     Dates: start: 20200522, end: 202007
  6. RESITUNE [Concomitant]
     Active Substance: ASPIRIN
     Dosage: 100 MG, 1X/DAY
     Route: 048
  7. LEVOTHYROX [Concomitant]
     Active Substance: LEVOTHYROXINE
     Dosage: 50 UG, 1X/DAY
     Route: 048

REACTIONS (4)
  - Respiratory disorder [Recovered/Resolved]
  - Diarrhoea [Recovered/Resolved]
  - Paraesthesia [Recovered/Resolved]
  - Muscle spasms [Recovered/Resolved]

NARRATIVE: CASE EVENT DATE: 20200522
